FAERS Safety Report 23230449 (Version 1)
Quarter: 2023Q4

REPORT INFORMATION
  Report Type: Spontaneous
  Country: US (occurrence: US)
  Receive Date: 20231127
  Receipt Date: 20231127
  Transmission Date: 20240110
  Serious: No
  Sender: FDA-Public Use
  Company Number: US-002147023-NVSC2023US168131

PATIENT
  Sex: Male
  Weight: 99.79 kg

DRUGS (6)
  1. CLINDAMYCIN [Suspect]
     Active Substance: CLINDAMYCIN
     Indication: Hidradenitis
     Dosage: UNK
     Route: 061
  2. CLOBETASOL [Suspect]
     Active Substance: CLOBETASOL
     Indication: Hidradenitis
     Dosage: UNK, PRN (AS NEEDED FOR FLARES)
     Route: 065
  3. COSENTYX [Suspect]
     Active Substance: SECUKINUMAB
     Indication: Hidradenitis
     Dosage: 300 MG (2 PENS)
     Route: 058
  4. DOXYCYCLINE [Suspect]
     Active Substance: DOXYCYCLINE
     Indication: Hidradenitis
     Dosage: UNK (DATE OF SERVICE: 12 DEC 2022)
     Route: 048
  5. ISOTRETINOIN [Suspect]
     Active Substance: ISOTRETINOIN
     Indication: Hidradenitis
     Dosage: UNK
     Route: 065
  6. MINOCYCLINE [Suspect]
     Active Substance: MINOCYCLINE HYDROCHLORIDE
     Indication: Hidradenitis
     Dosage: UNK
     Route: 061

REACTIONS (30)
  - Erythema [Not Recovered/Not Resolved]
  - Pain [Not Recovered/Not Resolved]
  - Skin mass [Unknown]
  - Dermatitis [Unknown]
  - Tinea manuum [Unknown]
  - Palmar erythema [Unknown]
  - Mucopolysaccharidosis I [Unknown]
  - Subcutaneous abscess [Unknown]
  - Depression [Unknown]
  - Rash erythematous [Unknown]
  - Tenderness [Unknown]
  - Dermatitis acneiform [Unknown]
  - Crying [Unknown]
  - Rash pruritic [Unknown]
  - Dermatitis atopic [Unknown]
  - Papule [Unknown]
  - Actinic keratosis [Unknown]
  - Paraesthesia [Unknown]
  - Impetigo [Unknown]
  - Tinea pedis [Unknown]
  - Hidradenitis [Unknown]
  - Scar [Unknown]
  - Fistula [Unknown]
  - Dry skin [Unknown]
  - Genital rash [Unknown]
  - Acne conglobata [Unknown]
  - Alopecia scarring [Unknown]
  - Skin plaque [Unknown]
  - Therapeutic product effect incomplete [Unknown]
  - Product use in unapproved indication [Unknown]
